FAERS Safety Report 12698792 (Version 1)
Quarter: 2016Q3

REPORT INFORMATION
  Report Type: Spontaneous
  Country: US (occurrence: US)
  Receive Date: 20160830
  Receipt Date: 20160830
  Transmission Date: 20161109
  Serious: No
  Sender: FDA-Public Use
  Company Number: GXBR2016US000723

PATIENT
  Sex: Female

DRUGS (1)
  1. OXISTAT [Suspect]
     Active Substance: OXICONAZOLE NITRATE
     Indication: FUNGAL TEST POSITIVE
     Dosage: UNK DF, UNK
     Route: 061

REACTIONS (1)
  - Expired product administered [Not Recovered/Not Resolved]
